FAERS Safety Report 9341700 (Version 1)
Quarter: 2013Q2

REPORT INFORMATION
  Report Type: Spontaneous
  Country: US (occurrence: US)
  Receive Date: 20130611
  Receipt Date: 20130611
  Transmission Date: 20140414
  Serious: No
  Sender: FDA-Public Use
  Company Number: US-PFIZER INC-2013174237

PATIENT
  Age: 59 Year
  Sex: Male
  Weight: 104 kg

DRUGS (6)
  1. NORVASC [Suspect]
     Indication: HYPERTENSION
     Dosage: 2.5 MG, 1X/DAY
     Route: 048
     Dates: start: 2002
  2. NORVASC [Suspect]
     Dosage: 2.5 MG, 1X/DAY
     Route: 048
     Dates: start: 2012
  3. NORVASC [Suspect]
     Dosage: 5 MG, 1X/DAY
     Route: 048
  4. LISINOPRIL [Concomitant]
     Dosage: UNK
  5. ASPIRIN [Concomitant]
     Dosage: 81 MG, UNK
  6. ELAVIL [Concomitant]
     Indication: DEPRESSION
     Dosage: UNK

REACTIONS (6)
  - Vitreous floaters [Unknown]
  - Eye disorder [Unknown]
  - Lacrimation increased [Unknown]
  - Eye irritation [Unknown]
  - Blood pressure inadequately controlled [Unknown]
  - Incorrect dose administered [Unknown]
